FAERS Safety Report 11878186 (Version 1)
Quarter: 2015Q4

REPORT INFORMATION
  Report Type: Report from Study
  Country: HR (occurrence: HR)
  Receive Date: 20151230
  Receipt Date: 20151230
  Transmission Date: 20160305
  Serious: Yes (Hospitalization, Other)
  Sender: FDA-Public Use
  Company Number: PHHY2015HR165953

PATIENT
  Age: 71 Year
  Sex: Male

DRUGS (6)
  1. PANTOPRAZOL [Concomitant]
     Active Substance: PANTOPRAZOLE SODIUM
     Indication: PRODUCT USED FOR UNKNOWN INDICATION
     Dosage: 40 MG, QD
     Route: 048
  2. ALTIAZEM RR [Concomitant]
     Indication: PRODUCT USED FOR UNKNOWN INDICATION
     Dosage: 60 MG, QD
     Route: 048
  3. NEORAL [Suspect]
     Active Substance: CYCLOSPORINE
     Indication: IMMUNOSUPPRESSION
  4. CELLCEPT [Suspect]
     Active Substance: MYCOPHENOLATE MOFETIL\MYCOPHENOLATE MOFETIL HYDROCHLORIDE
     Indication: IMMUNOSUPPRESSION
     Dosage: 2000 MG, UNK
     Route: 048
     Dates: start: 20130304
  5. ZEFFIX [Concomitant]
     Active Substance: LAMIVUDINE
     Indication: BLOOD DONOR
     Dosage: 100 MG, UNK
     Route: 048
  6. NEORAL [Suspect]
     Active Substance: CYCLOSPORINE
     Indication: LIVER TRANSPLANT
     Dosage: 250 MG, QD
     Route: 048
     Dates: start: 20130304

REACTIONS (9)
  - Calculus bladder [Not Recovered/Not Resolved]
  - Urinary tract infection [Not Recovered/Not Resolved]
  - Bladder diverticulitis [Not Recovered/Not Resolved]
  - Blood urea increased [Unknown]
  - Cystitis [Not Recovered/Not Resolved]
  - Blood bilirubin increased [Unknown]
  - Blood triglycerides increased [Unknown]
  - Haemoglobin decreased [Unknown]
  - Blood creatinine increased [Unknown]

NARRATIVE: CASE EVENT DATE: 20140110
